FAERS Safety Report 4428941-X (Version None)
Quarter: 2004Q3

REPORT INFORMATION
  Report Type: 
  Country: None (occurrence: None)
  Receive Date: 20040818
  Receipt Date: 20031223
  Transmission Date: 20050211
  Serious: No
  Sender: FDA-Public Use
  Company Number: US-GLAXOSMITHKLINE-A0494049A

PATIENT
  Age: 44 Year
  Sex: Female
  Weight: 95.9 kg

DRUGS (3)
  1. LOTRONEX [Suspect]
     Indication: IRRITABLE BOWEL SYNDROME
     Dosage: 1MG TWICE PER DAY
     Route: 048
     Dates: start: 20000719, end: 20001213
  2. AXID [Concomitant]
     Dosage: 300MG TWICE PER DAY
  3. ZANTAC [Concomitant]
     Dosage: 300MG TWICE PER DAY

REACTIONS (1)
  - CONSTIPATION [None]
